FAERS Safety Report 4457805-0 (Version None)
Quarter: 2004Q3

REPORT INFORMATION
  Report Type: 
  Country: None (occurrence: None)
  Receive Date: 20040917
  Receipt Date: 20040716
  Transmission Date: 20050211
  Serious: Yes (Hospitalization)
  Sender: FDA-Public Use
  Company Number: US-JNJFOC-20040705651

PATIENT
  Age: 7 Year
  Sex: Female
  Weight: 27.2158 kg

DRUGS (4)
  1. TOPAMAX [Suspect]
     Indication: CONVULSION
     Dosage: 30 MG, 2 IN 1 DAY, ORAL
     Route: 048
  2. HYDROCODONE (HYDROCODONE) [Suspect]
  3. PHENOBARBITAL TAB [Concomitant]
  4. TEGRATOL (CARBAMAZEPINE) [Concomitant]

REACTIONS (4)
  - CONVULSION [None]
  - DRUG SCREEN POSITIVE [None]
  - DYSARTHRIA [None]
  - FEELING DRUNK [None]
